FAERS Safety Report 6670687-1 (Version None)
Quarter: 2010Q2

REPORT INFORMATION
  Report Type: 
  Country: None (occurrence: None)
  Receive Date: 20100407
  Receipt Date: 20100330
  Transmission Date: 20101027
  Serious: Yes (Hospitalization)
  Sender: FDA-Public Use
  Company Number: US-PURDUE-USA-2008-0034934

PATIENT
  Sex: Male

DRUGS (2)
  1. MS CONTIN [Suspect]
     Indication: PAIN
     Dosage: 75 MG, Q8H
     Dates: end: 20081201
  2. MS CONTIN [Suspect]
     Dosage: 90 UNK, UNK
     Route: 048
     Dates: start: 20081201

REACTIONS (5)
  - FLUSHING [None]
  - INFECTION [None]
  - LACRIMATION INCREASED [None]
  - NASAL CONGESTION [None]
  - PYREXIA [None]
